FAERS Safety Report 7512134-3 (Version None)
Quarter: 2011Q2

REPORT INFORMATION
  Report Type: 
  Country: None (occurrence: None)
  Receive Date: 20110520
  Receipt Date: 20110508
  Transmission Date: 20111010
  Serious: Yes (Death)
  Sender: FDA-Public Use
  Company Number: AMIT20110008

PATIENT
  Age: 1 Month
  Sex: Female

DRUGS (3)
  1. NORTRIPTYLINE HCL [Suspect]
     Indication: PRODUCT USED FOR UNKNOWN INDICATION
     Dosage: ORAL
     Route: 048
  2. BROMAZEPAM (BROMAZEPAM) (BROMAZEPAM) [Concomitant]
  3. AMITRIPTYLINE HYDROCHLORIDE [Suspect]
     Indication: PRODUCT USED FOR UNKNOWN INDICATION
     Dosage: 800 MG, ORAL
     Route: 048

REACTIONS (1)
  - OVERDOSE [None]
